FAERS Safety Report 4948452-2 (Version None)
Quarter: 2006Q1

REPORT INFORMATION
  Report Type: 
  Country: None (occurrence: None)
  Receive Date: 20060314
  Receipt Date: 20060307
  Transmission Date: 20060701
  Serious: Yes (Death)
  Sender: FDA-Public Use
  Company Number: 2006-139016-NL

PATIENT
  Age: 53 Year
  Sex: Male

DRUGS (11)
  1. DANAPAROID SODIUM [Suspect]
     Indication: DISSEMINATED INTRAVASCULAR COAGULATION
     Dosage: 1250 ANTI-XA BID/ANTI-XA; INTRAVENOUS
     Route: 042
     Dates: start: 20060107, end: 20060115
  2. DANAPAROID SODIUM [Suspect]
     Indication: DISSEMINATED INTRAVASCULAR COAGULATION
     Dosage: 1250 ANTI-XA BID/ANTI-XA; INTRAVENOUS
     Route: 042
     Dates: start: 20060121, end: 20060214
  3. GABEXATE MESILATE [Suspect]
     Indication: DISSEMINATED INTRAVASCULAR COAGULATION
     Dosage: DF/2000 MG, NI
     Dates: start: 20060107, end: 20060115
  4. GABEXATE MESILATE [Suspect]
     Indication: DISSEMINATED INTRAVASCULAR COAGULATION
     Dosage: DF/2000 MG, NI
     Dates: start: 20060121, end: 20060214
  5. ARBEKACIN SULFATE [Concomitant]
  6. OMEPRAZOLE [Concomitant]
  7. PREDNISOLONE [Concomitant]
  8. VANCOMYCIN HYDROCHLORIDE [Concomitant]
  9. PAZUFLOXACIN [Concomitant]
  10. MICAFUNGIN SODIUM [Concomitant]
  11. SIVELESTAT [Concomitant]

REACTIONS (3)
  - CEREBRAL HAEMORRHAGE [None]
  - CONDITION AGGRAVATED [None]
  - DISSEMINATED INTRAVASCULAR COAGULATION [None]
